FAERS Safety Report 5437838-8 (Version None)
Quarter: 2007Q3

REPORT INFORMATION
  Report Type: 
  Country: None (occurrence: None)
  Receive Date: 20070831
  Receipt Date: 20070726
  Transmission Date: 20080115
  Serious: No
  Sender: FDA-Public Use
  Company Number: A0660218A

PATIENT
  Age: 54 Year
  Sex: Female

DRUGS (2)
  1. ALLI [Suspect]
     Dates: start: 20070616, end: 20070622
  2. ANTIHISTAMINE [Concomitant]

REACTIONS (3)
  - FATIGUE [None]
  - PAIN [None]
  - PYREXIA [None]
